FAERS Safety Report 8795284 (Version 2)
Quarter: 2013Q4

REPORT INFORMATION
  Report Type: Spontaneous
  Country: US (occurrence: US)
  Receive Date: 20120917
  Receipt Date: 20131101
  Transmission Date: 20140711
  Serious: No
  Sender: FDA-Public Use
  Company Number: US-009507513-1208USA011851

PATIENT
  Age: 58 Year
  Sex: Male

DRUGS (3)
  1. TEMODAR [Suspect]
     Indication: GLIOBLASTOMA MULTIFORME
     Dosage: 75 MG/M2, QD
     Route: 048
  2. TEMODAR [Suspect]
     Dosage: 200 MG/M2, DAYS 1-5 EVERY 28 DAYS
     Route: 048
  3. PREDNISOLONE [Concomitant]
     Indication: LUMBAR RADICULOPATHY

REACTIONS (3)
  - Fatigue [Unknown]
  - Nausea [Unknown]
  - Deep vein thrombosis [Unknown]
